FAERS Safety Report 8274184-1 (Version None)
Quarter: 2012Q2

REPORT INFORMATION
  Report Type: 
  Country: None (occurrence: None)
  Receive Date: 20120409
  Receipt Date: 20120328
  Transmission Date: 20120825
  Serious: Yes (Other)
  Sender: FDA-Public Use
  Company Number: 2012AP000882

PATIENT
  Age: 78 Year
  Sex: Male

DRUGS (2)
  1. LATANOPROST [Suspect]
     Dosage: ;OPH;
     Route: 047
     Dates: start: 20120301, end: 20120301
  2. XALATAN [Concomitant]

REACTIONS (2)
  - PRODUCT SUBSTITUTION ISSUE [None]
  - EYE PAIN [None]
